FAERS Safety Report 8987331 (Version 1)
Quarter: 2012Q4

REPORT INFORMATION
  Report Type: 
  Country: US (occurrence: US)
  Receive Date: 20121226
  Receipt Date: 20121226
  Transmission Date: 20130627
  Serious: No
  Sender: FDA-Public Use
  Company Number: US-ROCHE-1173973

PATIENT
  Age: 12 Year
  Sex: Male
  Weight: 27.24 kg

DRUGS (1)
  1. TAMIFLU [Suspect]
     Indication: INFLUENZA
     Route: 048

REACTIONS (5)
  - Overdose [Unknown]
  - Nausea [Unknown]
  - Vomiting [Unknown]
  - Parosmia [Unknown]
  - Dysgeusia [Unknown]
